FAERS Safety Report 18183111 (Version 1)
Quarter: 2020Q3

REPORT INFORMATION
  Report Type: Spontaneous
  Country: FR (occurrence: FR)
  Receive Date: 20200821
  Receipt Date: 20200821
  Transmission Date: 20201103
  Serious: Yes (Hospitalization)
  Sender: FDA-Public Use
  Company Number: FR-BAUSCH-BL-2020-023522

PATIENT
  Age: 53 Year
  Sex: Female

DRUGS (20)
  1. HIDONAC [Suspect]
     Active Substance: ACETYLCYSTEINE
     Indication: POISONING
     Dosage: ACCORDING TO RCP PROTOCOL WITH ADJUSTMENT TO WEIGHT
     Route: 042
  2. BURINEX [Suspect]
     Active Substance: BUMETANIDE
     Indication: HYPERNATRAEMIA
     Route: 042
     Dates: start: 20190405
  3. CELOCURINE [Suspect]
     Active Substance: SUCCINYLCHOLINE
     Indication: ANAESTHESIA
     Route: 041
     Dates: start: 20190401, end: 20190401
  4. CALCIPARINE [Concomitant]
     Active Substance: HEPARIN CALCIUM
     Indication: THROMBOSIS PROPHYLAXIS
     Route: 058
     Dates: start: 20190405, end: 20190412
  5. EFFERALGAN [Suspect]
     Active Substance: ACETAMINOPHEN
     Indication: POISONING DELIBERATE
     Dosage: 1 TOTAL
     Route: 048
     Dates: start: 20190401, end: 20190401
  6. AUGMENTIN [Suspect]
     Active Substance: AMOXICILLIN\CLAVULANATE POTASSIUM
     Indication: ANTIBIOTIC THERAPY
     Dosage: 2G / 200MG EVERY 12H
     Route: 042
     Dates: start: 20190401, end: 20190409
  7. XEROQUEL [Concomitant]
     Active Substance: QUETIAPINE FUMARATE
     Indication: DEPRESSION
     Route: 048
     Dates: end: 20190331
  8. GENTAMICINE [Suspect]
     Active Substance: GENTAMICIN
     Indication: ANTIBIOTIC THERAPY
     Route: 042
     Dates: start: 20190402, end: 20190405
  9. NARCAN [Suspect]
     Active Substance: NALOXONE HYDROCHLORIDE
     Indication: PRODUCT USED FOR UNKNOWN INDICATION
     Dosage: 1 TOTAL
     Route: 042
     Dates: start: 20190401, end: 20190401
  10. MIDAZOLAM. [Suspect]
     Active Substance: MIDAZOLAM
     Indication: SEDATION
     Route: 042
     Dates: start: 20190402
  11. LASILIX [Suspect]
     Active Substance: FUROSEMIDE
     Indication: HYPERNATRAEMIA
     Route: 042
     Dates: start: 20190403, end: 20190405
  12. FLUOXETINE (CHLORHYDRATE DE) [Suspect]
     Active Substance: FLUOXETINE HYDROCHLORIDE
     Indication: POISONING DELIBERATE
     Dosage: 1 TOTAL
     Route: 048
     Dates: start: 20190401, end: 20190401
  13. FRAGMINE [Suspect]
     Active Substance: DALTEPARIN SODIUM
     Indication: THROMBOSIS PROPHYLAXIS
     Route: 058
     Dates: start: 20190402
  14. INSULINE [Concomitant]
     Active Substance: INSULIN NOS
     Indication: DIABETES MELLITUS
     Route: 058
     Dates: start: 20190402
  15. LAMICTAL [Suspect]
     Active Substance: LAMOTRIGINE
     Indication: POISONING DELIBERATE
     Dosage: 1 TOTAL
     Route: 048
     Dates: start: 20190401, end: 20190401
  16. THERALENE [Concomitant]
     Active Substance: TRIMEPRAZINE
     Indication: POISONING DELIBERATE
     Route: 048
     Dates: start: 20190401, end: 20190401
  17. THERALENE [Concomitant]
     Active Substance: TRIMEPRAZINE
     Indication: DEPRESSION
     Route: 048
     Dates: end: 20190331
  18. EUPANTOL [Concomitant]
     Active Substance: PANTOPRAZOLE SODIUM
     Indication: GASTRIC ULCER
     Route: 042
     Dates: start: 20190402
  19. HYDROCORTISONE. [Suspect]
     Active Substance: HYDROCORTISONE
     Indication: PRODUCT USED FOR UNKNOWN INDICATION
     Route: 042
     Dates: start: 20190402
  20. KETAMINE [Suspect]
     Active Substance: KETAMINE
     Indication: ANAESTHESIA
     Route: 041
     Dates: start: 20190401, end: 20190401

REACTIONS (2)
  - Poisoning deliberate [Recovered/Resolved]
  - Thrombocytopenia [Recovered/Resolved]

NARRATIVE: CASE EVENT DATE: 20190401
